FAERS Safety Report 6394647-3 (Version None)
Quarter: 2009Q4

REPORT INFORMATION
  Report Type: 
  Country: None (occurrence: None)
  Receive Date: 20091009
  Receipt Date: 20090929
  Transmission Date: 20100525
  Serious: Yes (Hospitalization)
  Sender: FDA-Public Use
  Company Number: BR-JNJFOC-20090905243

PATIENT
  Sex: Female
  Weight: 54.6 kg

DRUGS (6)
  1. REMICADE [Suspect]
     Indication: SPONDYLITIS
     Dosage: 4TH INFUSION
     Route: 042
     Dates: start: 20090514, end: 20090915
  2. REMICADE [Suspect]
     Indication: REITER'S SYNDROME
     Dosage: 3 INFUSIONS ON UNSPECIFIED DATES
     Route: 042
     Dates: start: 20090514, end: 20090915
  3. METHOTREXATE [Concomitant]
     Indication: REITER'S SYNDROME
  4. PREDNISONE [Concomitant]
     Route: 048
  5. NAPROXEN [Concomitant]
  6. CHLOROQUINE DIPHOSPHATE [Concomitant]

REACTIONS (5)
  - ANAPHYLACTIC REACTION [None]
  - ARTHRITIS [None]
  - INFUSION RELATED REACTION [None]
  - SACROILIITIS [None]
  - URINARY TRACT INFECTION [None]
